APPROVED DRUG PRODUCT: SUCRALFATE
Active Ingredient: SUCRALFATE
Strength: 1GM/10ML
Dosage Form/Route: SUSPENSION;ORAL
Application: A211884 | Product #001 | TE Code: AB
Applicant: VISTAPHARM LLC
Approved: Mar 15, 2022 | RLD: No | RS: No | Type: RX